FAERS Safety Report 9719254 (Version 6)
Quarter: 2014Q1

REPORT INFORMATION
  Report Type: Spontaneous
  Country: GB (occurrence: GB)
  Receive Date: 20131127
  Receipt Date: 20140110
  Transmission Date: 20141002
  Serious: Yes (Death, Hospitalization)
  Sender: FDA-Public Use
  Company Number: PHFR2013GB006680

PATIENT
  Age: 33 Year
  Sex: Male
  Weight: 92.35 kg

DRUGS (3)
  1. CLOZARIL [Suspect]
     Indication: SCHIZOPHRENIA
     Dosage: UNK UKN, UNK
     Route: 048
     Dates: start: 20070209
  2. CLOZARIL [Suspect]
     Dosage: 650 MG, UNK
     Dates: end: 20131119
  3. PROPRANOLOL [Concomitant]
     Dosage: 20 MG, UNK

REACTIONS (7)
  - Hepatic cirrhosis [Fatal]
  - Toxicity to various agents [Fatal]
  - Hepatitis C [Unknown]
  - Convulsion [Unknown]
  - Loss of consciousness [Unknown]
  - Antipsychotic drug level increased [Unknown]
  - Overdose [Unknown]
